FAERS Safety Report 6917468-9 (Version None)
Quarter: 2010Q3

REPORT INFORMATION
  Report Type: 
  Country: None (occurrence: None)
  Receive Date: 20100810
  Receipt Date: 20100803
  Transmission Date: 20110219
  Serious: Yes (Other)
  Sender: FDA-Public Use
  Company Number: PHHO2010AU11718

PATIENT
  Sex: Male

DRUGS (4)
  1. CGP 57148B T35717+ [Suspect]
     Indication: GRAFT VERSUS HOST DISEASE
     Route: 048
  2. TACROLIMUS [Concomitant]
  3. MYCOPHENOLATE MOFETIL [Concomitant]
  4. STEROIDS NOS [Concomitant]

REACTIONS (1)
  - LETHARGY [None]
